FAERS Safety Report 19886111 (Version 2)
Quarter: 2021Q4

REPORT INFORMATION
  Report Type: Spontaneous
  Country: US (occurrence: US)
  Receive Date: 20210927
  Receipt Date: 20211117
  Transmission Date: 20220303
  Serious: Yes (Hospitalization, Other)
  Sender: FDA-Public Use
  Company Number: US-PFIZER INC-2021796147

PATIENT
  Age: 60 Year
  Sex: Female
  Weight: 110.2 kg

DRUGS (7)
  1. IBRANCE [Suspect]
     Active Substance: PALBOCICLIB
     Indication: Breast cancer female
     Dosage: 125 MG, CYCLIC(DAILY; 21 OUT OF 28 DAYS)
     Route: 048
     Dates: start: 20210515
  2. IBRANCE [Suspect]
     Active Substance: PALBOCICLIB
     Dosage: 100 MG, CYCLIC (DAILY; 21 OUT OF 28 DAYS)
     Route: 048
  3. IBRANCE [Suspect]
     Active Substance: PALBOCICLIB
     Dosage: 100 MG, CYCLIC (DAILY X 21 DAYS THEN OFF FOR 7 DAYS (FOR A 28 DAY CYCLE))
     Route: 048
     Dates: start: 20210906
  4. COLACE [Concomitant]
     Active Substance: DOCUSATE SODIUM
     Dosage: 100 MG
  5. GABAPENTIN [Concomitant]
     Active Substance: GABAPENTIN
     Dosage: 100 MG
  6. OXYCODONE HYDROCHLORIDE [Concomitant]
     Active Substance: OXYCODONE HYDROCHLORIDE
     Dosage: 10 MG
  7. LETROZOLE [Concomitant]
     Active Substance: LETROZOLE
     Dosage: 2.5 MG

REACTIONS (7)
  - Pneumonia [Recovering/Resolving]
  - COVID-19 [Recovering/Resolving]
  - White blood cell count decreased [Unknown]
  - Diarrhoea [Unknown]
  - Vomiting [Unknown]
  - Decreased appetite [Unknown]
  - Fatigue [Recovering/Resolving]

NARRATIVE: CASE EVENT DATE: 20210101
